FAERS Safety Report 5018314-3 (Version None)
Quarter: 2006Q2

REPORT INFORMATION
  Report Type: 
  Country: None (occurrence: None)
  Receive Date: 20060530
  Receipt Date: 20060516
  Transmission Date: 20061013
  Serious: Yes (Hospitalization, Other)
  Sender: FDA-Public Use
  Company Number: 2004193292BR

PATIENT
  Age: 13 Year
  Sex: Female

DRUGS (1)
  1. GENOTROPIN [Suspect]
     Indication: BODY HEIGHT BELOW NORMAL
     Dosage: 1.2 MG (1.2 MG, DAILY)
     Dates: start: 19991204, end: 20030101

REACTIONS (6)
  - BACTERIAL INFECTION [None]
  - HYPOTHALAMO-PITUITARY DISORDERS [None]
  - IATROGENIC INJURY [None]
  - PITUITARY TUMOUR BENIGN [None]
  - PROCEDURAL COMPLICATION [None]
  - SEPSIS [None]
